FAERS Safety Report 18643624 (Version 1)
Quarter: 2020Q4

REPORT INFORMATION
  Report Type: Spontaneous
  Country: CA (occurrence: CA)
  Receive Date: 20201221
  Receipt Date: 20201221
  Transmission Date: 20210114
  Serious: Yes (Other)
  Sender: FDA-Public Use
  Company Number: CA-PFIZER INC-2020493412

PATIENT
  Age: 56 Year
  Sex: Female

DRUGS (3)
  1. CYCLOPENTHIAZIDE [Concomitant]
     Active Substance: CYCLOPENTHIAZIDE
     Indication: HYPERTENSION
     Dosage: UNK
  2. PROPANOLOL HCL [Suspect]
     Active Substance: PROPRANOLOL HYDROCHLORIDE
     Dosage: 80 MG, 3X/DAY
  3. INDOMETHACIN [INDOMETACIN SODIUM] [Concomitant]
     Active Substance: INDOMETHACIN SODIUM
     Dosage: UNK

REACTIONS (2)
  - Hypersensitivity pneumonitis [Recovered/Resolved]
  - Eosinophilia [Recovered/Resolved]
